FAERS Safety Report 17876269 (Version 2)
Quarter: 2020Q2

REPORT INFORMATION
  Report Type: Spontaneous
  Country: US (occurrence: US)
  Receive Date: 20200609
  Receipt Date: 20200610
  Transmission Date: 20200714
  Serious: Yes (Other)
  Sender: FDA-Public Use
  Company Number: US-PFIZER INC-2020223798

PATIENT
  Age: 50 Year
  Sex: Female
  Weight: 53.98 kg

DRUGS (1)
  1. EFFEXOR XR [Suspect]
     Active Substance: VENLAFAXINE HYDROCHLORIDE
     Indication: DEPRESSION
     Dosage: 75 MG, 1X/DAY (ON AN EMPTY STOMACH)
     Route: 048
     Dates: start: 2003

REACTIONS (9)
  - Poor quality product administered [Unknown]
  - Drug dependence [Unknown]
  - Choking [Not Recovered/Not Resolved]
  - Product use complaint [Unknown]
  - Malaise [Unknown]
  - Cerebral disorder [Not Recovered/Not Resolved]
  - Nausea [Not Recovered/Not Resolved]
  - Headache [Not Recovered/Not Resolved]
  - Oxygen saturation decreased [Unknown]

NARRATIVE: CASE EVENT DATE: 202005
